FAERS Safety Report 22281397 (Version 1)
Quarter: 2023Q2

REPORT INFORMATION
  Report Type: Spontaneous
  Country: CN (occurrence: CN)
  Receive Date: 20230504
  Receipt Date: 20230504
  Transmission Date: 20230722
  Serious: Yes (Hospitalization, Other)
  Sender: FDA-Public Use
  Company Number: None

PATIENT
  Age: 28 Year
  Sex: Male
  Weight: 58 kg

DRUGS (8)
  1. CYCLOPHOSPHAMIDE [Suspect]
     Active Substance: CYCLOPHOSPHAMIDE
     Indication: Acute lymphocytic leukaemia
     Dosage: 1.7 G, QD, DILUTED WITH SODIUM CHLORIDE 1000 ML
     Route: 041
     Dates: start: 20230401, end: 20230401
  2. SODIUM CHLORIDE [Suspect]
     Active Substance: SODIUM CHLORIDE
     Indication: Medication dilution
     Dosage: 1000 ML, QD, USED TO DILUTE CYCLOPHOSPHAMIDE 1.7 G
     Route: 041
     Dates: start: 20230401, end: 20230401
  3. SODIUM CHLORIDE [Suspect]
     Active Substance: SODIUM CHLORIDE
     Dosage: 100 ML, QD, USED TO DILUTE CYTARABINE HYDROCHLORIDE 125 MG
     Route: 041
     Dates: start: 20230403, end: 20230406
  4. SODIUM CHLORIDE [Suspect]
     Active Substance: SODIUM CHLORIDE
     Dosage: 100 ML, QD, USED TO DILUTE CYTARABINE HYDROCHLORIDE 125 MG
     Route: 041
     Dates: start: 20230410, end: 20230413
  5. CYTARABINE HYDROCHLORIDE [Suspect]
     Active Substance: CYTARABINE HYDROCHLORIDE
     Indication: Acute lymphocytic leukaemia
     Dosage: 125 MG, QD, DILUTED WITH SODIUM CHLORIDE 100 ML
     Route: 041
     Dates: start: 20230403, end: 20230406
  6. CYTARABINE HYDROCHLORIDE [Suspect]
     Active Substance: CYTARABINE HYDROCHLORIDE
     Dosage: 125 MG, QD, DILUTED WITH SODIUM CHLORIDE 100 ML
     Route: 041
     Dates: start: 20230410, end: 20230413
  7. GRANULOCYTE COLONY-STIMULATING FACTOR NOS [Concomitant]
     Active Substance: GRANULOCYTE COLONY-STIMULATING FACTOR NOS
     Dosage: 150 UG, QD
     Route: 065
     Dates: start: 20230329, end: 20230418
  8. PLATELETS [Concomitant]
     Active Substance: HUMAN PLATELET, ALLOGENIC
     Dosage: TRANSFUSION
     Route: 065
     Dates: start: 20230416

REACTIONS (1)
  - Myelosuppression [Recovering/Resolving]

NARRATIVE: CASE EVENT DATE: 20230418
